FAERS Safety Report 5138666-3 (Version None)
Quarter: 2006Q4

REPORT INFORMATION
  Report Type: 
  Country: None (occurrence: None)
  Receive Date: 20061026
  Receipt Date: 20061026
  Transmission Date: 20070319
  Serious: Yes (Other)
  Sender: FDA-Public Use
  Company Number: None

PATIENT
  Age: 6 Year
  Sex: Female
  Weight: 15.8759 kg

DRUGS (1)
  1. PULMICORT [Suspect]
     Dosage: 1 MCG   2X DAY   INHAL
     Route: 055
     Dates: start: 20040101, end: 20061021

REACTIONS (3)
  - MEDICAL DEVICE COMPLICATION [None]
  - MEDICATION ERROR [None]
  - PHARMACEUTICAL PRODUCT COMPLAINT [None]
